FAERS Safety Report 23196902 (Version 1)
Quarter: 2023Q4

REPORT INFORMATION
  Report Type: Spontaneous
  Country: CN (occurrence: None)
  Receive Date: 20231117
  Receipt Date: 20231117
  Transmission Date: 20240109
  Serious: Yes (Hospitalization)
  Sender: FDA-Public Use
  Company Number: 2023A256681

PATIENT
  Age: 25438 Day
  Sex: Female
  Weight: 52 kg

DRUGS (1)
  1. OSIMERTINIB [Suspect]
     Active Substance: OSIMERTINIB
     Indication: Targeted cancer therapy
     Route: 048
     Dates: start: 20191101, end: 20230224

REACTIONS (6)
  - Malignant neoplasm progression [Unknown]
  - Metastasis [Unknown]
  - Headache [Recovering/Resolving]
  - Dizziness [Recovering/Resolving]
  - Drug resistance [Unknown]
  - Drug intolerance [Unknown]

NARRATIVE: CASE EVENT DATE: 20230224
